FAERS Safety Report 14617683 (Version 2)
Quarter: 2018Q1

REPORT INFORMATION
  Report Type: Report from Study
  Country: TW (occurrence: TW)
  Receive Date: 20180309
  Receipt Date: 20180315
  Transmission Date: 20180509
  Serious: Yes (Hospitalization)
  Sender: FDA-Public Use
  Company Number: TW-ASTELLAS-2018US011609

PATIENT
  Age: 73 Year
  Sex: Male
  Weight: 63 kg

DRUGS (8)
  1. TRAJENTA [Concomitant]
     Active Substance: LINAGLIPTIN
     Indication: DIABETES MELLITUS
     Route: 048
     Dates: start: 20160909
  2. HYTRIN [Concomitant]
     Active Substance: TERAZOSIN HYDROCHLORIDE
     Indication: LOWER URINARY TRACT SYMPTOMS
     Route: 048
     Dates: start: 20151125
  3. BOKEY EMC [Concomitant]
     Indication: ANGINA PECTORIS
     Route: 048
     Dates: start: 20140815
  4. ENZALUTAMIDE [Suspect]
     Active Substance: ENZALUTAMIDE
     Indication: PROSTATE CANCER
     Route: 048
     Dates: start: 20161121
  5. FOLIC ACID. [Concomitant]
     Active Substance: FOLIC ACID
     Indication: CHRONIC KIDNEY DISEASE
     Route: 048
     Dates: start: 20160930
  6. FORFLOW [Concomitant]
     Indication: CHRONIC KIDNEY DISEASE
     Dosage: 400 MG, UNK
     Route: 048
     Dates: start: 20170221
  7. CONCOR [Concomitant]
     Active Substance: BISOPROLOL FUMARATE
     Indication: HYPERTENSION
     Dosage: 1.25 UNK, ONCE DAILY
     Route: 048
     Dates: start: 20141104
  8. XGEVA [Concomitant]
     Active Substance: DENOSUMAB
     Indication: PROSTATE CANCER METASTATIC
     Dosage: 120 MG (DAILY DOSE), EVERY 4 WEEKS
     Route: 058
     Dates: start: 20131007, end: 20170922

REACTIONS (1)
  - Cellulitis [Recovered/Resolved]

NARRATIVE: CASE EVENT DATE: 20180223
